FAERS Safety Report 17205862 (Version 1)
Quarter: 2020Q1

REPORT INFORMATION
  Report Type: Spontaneous
  Country: US (occurrence: US)
  Receive Date: 20191226
  Receipt Date: 20191226
  Transmission Date: 20200409
  Serious: No
  Sender: FDA-Public Use
  Company Number: None

PATIENT
  Age: 48 Year
  Sex: Female
  Weight: 64.9 kg

DRUGS (2)
  1. GADAVIST [Suspect]
     Active Substance: GADOBUTROL
     Indication: MUSCULOSKELETAL PAIN
     Dosage: ?          OTHER FREQUENCY:ONE TIME INFUSION;?
     Route: 044
     Dates: start: 20191226, end: 20191226
  2. GADAVIST [Suspect]
     Active Substance: GADOBUTROL
     Indication: OSTEOARTHRITIS
     Dosage: ?          OTHER FREQUENCY:ONE TIME INFUSION;?
     Route: 044
     Dates: start: 20191226, end: 20191226

REACTIONS (3)
  - Feeling hot [None]
  - Flushing [None]
  - Paraesthesia [None]

NARRATIVE: CASE EVENT DATE: 20191226
